FAERS Safety Report 18903493 (Version 1)
Quarter: 2021Q1

REPORT INFORMATION
  Report Type: Report from Study
  Country: None (occurrence: AT)
  Receive Date: 20210216
  Receipt Date: 20210216
  Transmission Date: 20210420
  Serious: Yes (Other)
  Sender: FDA-Public Use
  Company Number: AT-ABBVIE-21K-009-3776044-00

PATIENT
  Age: 63 Year
  Sex: Female

DRUGS (2)
  1. DUODOPA [Suspect]
     Active Substance: CARBIDOPA\LEVODOPA
  2. DUODOPA [Suspect]
     Active Substance: CARBIDOPA\LEVODOPA
     Indication: PARKINSON^S DISEASE
     Dosage: 16H, MD: 8ML, CR DAYTIME: 3.5ML/H TO 3.7ML/H, ED: 1.6ML
     Route: 050
     Dates: start: 20210202

REACTIONS (2)
  - Device placement issue [Unknown]
  - Oxygen saturation decreased [Recovering/Resolving]

NARRATIVE: CASE EVENT DATE: 20210212
